FAERS Safety Report 4543173-2 (Version None)
Quarter: 2005Q1

REPORT INFORMATION
  Report Type: 
  Country: None (occurrence: None)
  Receive Date: 20050103
  Receipt Date: 20041221
  Transmission Date: 20050727
  Serious: Yes (Disabling)
  Sender: FDA-Public Use
  Company Number: FR-JNJFOC-20041201320

PATIENT
  Sex: Female
  Weight: 60 kg

DRUGS (8)
  1. EPITOMAX [Suspect]
     Route: 049
     Dates: start: 20041014, end: 20041130
  2. EPITOMAX [Suspect]
     Route: 049
     Dates: start: 20041014, end: 20041130
  3. EPITOMAX [Suspect]
     Route: 049
     Dates: start: 20041014, end: 20041130
  4. EPITOMAX [Suspect]
     Indication: MIGRAINE PROPHYLAXIS
     Route: 049
     Dates: start: 20041014, end: 20041130
  5. ZOMIG [Concomitant]
     Indication: MIGRAINE
     Dosage: 15 TO 22 TABLETS PER MONTH
     Route: 065
  6. LEVOTHYROX [Concomitant]
     Route: 065
  7. DAFALGAN CODEINE [Concomitant]
     Route: 065
  8. DAFALGAN CODEINE [Concomitant]
     Route: 065

REACTIONS (13)
  - DECREASED APPETITE [None]
  - DEPRESSION [None]
  - DIARRHOEA [None]
  - FATIGUE [None]
  - GASTROINTESTINAL DISORDER [None]
  - INSOMNIA [None]
  - IRRITABILITY [None]
  - NAUSEA [None]
  - PAIN [None]
  - PARAESTHESIA [None]
  - RAYNAUD'S PHENOMENON [None]
  - TEMPERATURE INTOLERANCE [None]
  - WEIGHT DECREASED [None]
